FAERS Safety Report 7296480-7 (Version None)
Quarter: 2011Q1

REPORT INFORMATION
  Report Type: 
  Country: None (occurrence: None)
  Receive Date: 20110216
  Receipt Date: 20110203
  Transmission Date: 20110831
  Serious: Yes (Other)
  Sender: FDA-Public Use
  Company Number: PHHY2011US10091

PATIENT
  Age: 72 Year
  Sex: Female

DRUGS (3)
  1. ALENDRONIC ACID [Suspect]
     Indication: OSTEOPOROSIS
     Route: 048
  2. ANTIBACTERIALS FOR SYSTEMIC USE [Concomitant]
  3. CHLORHEXIDINE GLUCONATE [Concomitant]

REACTIONS (3)
  - OSTEONECROSIS OF JAW [None]
  - POST PROCEDURAL FISTULA [None]
  - JAW FRACTURE [None]
